FAERS Safety Report 14733591 (Version 11)
Quarter: 2018Q4

REPORT INFORMATION
  Report Type: Report from Study
  Country: BR (occurrence: BR)
  Receive Date: 20180409
  Receipt Date: 20181225
  Transmission Date: 20190204
  Serious: Yes (Hospitalization)
  Sender: FDA-Public Use
  Company Number: BR-ROCHE-2099030

PATIENT
  Age: 59 Year
  Sex: Female

DRUGS (58)
  1. LEVOTIROXIN [Concomitant]
     Active Substance: LEVOTHYROXINE SODIUM
     Indication: HYPOTHYROIDISM
     Route: 065
     Dates: start: 2016
  2. DIPYRONE [Concomitant]
     Active Substance: DIPYRONE
     Route: 065
     Dates: start: 20180328
  3. DEXAMETHASONE. [Concomitant]
     Active Substance: DEXAMETHASONE
     Route: 048
     Dates: start: 20180412, end: 20180412
  4. DIPHENHYDRAMINE. [Concomitant]
     Active Substance: DIPHENHYDRAMINE
     Route: 065
     Dates: start: 20180412, end: 20180412
  5. XYLOCAINE [Concomitant]
     Active Substance: LIDOCAINE HYDROCHLORIDE
     Indication: STOMATITIS
     Route: 065
     Dates: start: 20180402, end: 20180408
  6. LACTULONA [Concomitant]
     Route: 065
     Dates: start: 20180430, end: 20180430
  7. CAPTOPRIL. [Concomitant]
     Active Substance: CAPTOPRIL
     Route: 065
     Dates: start: 20180614, end: 20180614
  8. FOLIC ACID. [Concomitant]
     Active Substance: FOLIC ACID
     Indication: ANAEMIA
     Route: 065
     Dates: start: 20180410, end: 20180426
  9. ZOLPIDEM [Concomitant]
     Active Substance: ZOLPIDEM\ZOLPIDEM TARTRATE
     Indication: INSOMNIA
     Route: 065
     Dates: start: 20180221, end: 20180409
  10. TYLEX (BRAZIL) [Concomitant]
     Active Substance: ACETAMINOPHEN\CODEINE PHOSPHATE
     Indication: ABDOMINAL PAIN
     Route: 065
     Dates: start: 20180221, end: 20180427
  11. DEXAMETHASONE. [Concomitant]
     Active Substance: DEXAMETHASONE
     Route: 048
     Dates: start: 20180410, end: 20180411
  12. CAPTOPRIL. [Concomitant]
     Active Substance: CAPTOPRIL
     Indication: HYPERTENSION
     Route: 065
     Dates: start: 20180412, end: 20180412
  13. LORAZEPAN [Concomitant]
     Active Substance: LORAZEPAM
     Indication: INSOMNIA
     Route: 065
     Dates: start: 20180410, end: 20180716
  14. AMLODIPINE [Concomitant]
     Active Substance: AMLODIPINE BESYLATE
     Route: 065
     Dates: start: 20180501, end: 20180501
  15. BISACODILO [Concomitant]
     Indication: CONSTIPATION
     Route: 065
     Dates: start: 20180426, end: 20180426
  16. LACTO-PURGA [Concomitant]
     Indication: CONSTIPATION
     Route: 065
     Dates: start: 1968, end: 20180905
  17. DEXAMETHASONE. [Concomitant]
     Active Substance: DEXAMETHASONE
     Indication: HYPERSENSITIVITY
     Route: 042
     Dates: start: 20180320, end: 20180320
  18. DEXAMETHASONE. [Concomitant]
     Active Substance: DEXAMETHASONE
     Route: 042
     Dates: start: 20180428, end: 20180428
  19. RANITIDINE. [Concomitant]
     Active Substance: RANITIDINE
     Indication: ABDOMINAL PAIN UPPER
     Route: 065
     Dates: start: 20180320, end: 20180320
  20. TRAMADOL. [Concomitant]
     Active Substance: TRAMADOL
     Indication: ABDOMINAL PAIN
     Route: 065
     Dates: start: 20180402, end: 20180403
  21. PROMETHAZINE [Concomitant]
     Active Substance: PROMETHAZINE\PROMETHAZINE HYDROCHLORIDE
     Indication: HYPERSENSITIVITY
     Route: 065
     Dates: start: 20180319, end: 20180331
  22. FERROUS SULFATE. [Concomitant]
     Active Substance: FERROUS SULFATE
     Indication: ANAEMIA
     Route: 065
     Dates: start: 20180410, end: 20180426
  23. SODIUM CHLORIDE. [Concomitant]
     Active Substance: SODIUM CHLORIDE
     Indication: PROPHYLAXIS
     Dosage: SODIUM CHLORIDE 0.9% (NEBULIZATION)
     Route: 065
     Dates: start: 20180403, end: 20180406
  24. PACLITAXEL. [Suspect]
     Active Substance: PACLITAXEL
     Indication: OVARIAN CANCER
     Dosage: DATE OF MOST RECENT DOSE OF PACLITAXEL PRIOR TO AE ONSET 20 MAR 2018?ON 12/APR/2018, SHE RECEIVED MO
     Route: 042
     Dates: start: 20180320
  25. CARBOPLATIN. [Suspect]
     Active Substance: CARBOPLATIN
     Indication: OVARIAN CANCER
     Dosage: DATE OF MOST RECENT DOSE OF CARBOPLATIN PRIOR TO AE ONSET 20 MAR 2018 ?ACHIEVE A TARGET AREA UNDER T
     Route: 042
     Dates: start: 20180320
  26. DIPHENHYDRAMINE. [Concomitant]
     Active Substance: DIPHENHYDRAMINE
     Indication: HYPERSENSITIVITY
     Route: 065
     Dates: start: 20180320, end: 20180320
  27. ONDANSETRON [Concomitant]
     Active Substance: ONDANSETRON
     Indication: NAUSEA
     Route: 065
     Dates: start: 20180320, end: 20180320
  28. NACL [Concomitant]
     Active Substance: SODIUM CHLORIDE
     Indication: HYPONATRAEMIA
     Route: 065
     Dates: start: 20180331, end: 20180401
  29. CAPTOPRIL. [Concomitant]
     Active Substance: CAPTOPRIL
     Route: 065
     Dates: start: 20180427, end: 20180427
  30. CAPTOPRIL. [Concomitant]
     Active Substance: CAPTOPRIL
     Route: 065
     Dates: start: 20180616, end: 20180616
  31. NACL [Concomitant]
     Active Substance: SODIUM CHLORIDE
     Indication: HYPONATRAEMIA
     Route: 065
     Dates: start: 20180331, end: 20180401
  32. BLINDED ATEZOLIZUMAB [Suspect]
     Active Substance: ATEZOLIZUMAB
     Indication: OVARIAN CANCER
     Dosage: DATE OF MOST RECENT DOSE OF ATEZOLIZUMAB/PLACEBO PRIOR TO AE ONSET 20 MAR 2018?ON 12/APR/2018, SHE R
     Route: 042
     Dates: start: 20180320
  33. ALDACTONE (BRAZIL) [Concomitant]
     Indication: ASCITES
     Route: 065
     Dates: start: 20180221, end: 20180330
  34. OMEPRAZOLE. [Concomitant]
     Active Substance: OMEPRAZOLE
     Indication: ABDOMINAL PAIN UPPER
     Route: 065
     Dates: start: 20180321, end: 20180904
  35. PARACETAMOL [Concomitant]
     Active Substance: ACETAMINOPHEN
     Indication: PROPHYLAXIS
     Route: 065
     Dates: start: 20180423, end: 20180424
  36. DIPYRONE [Concomitant]
     Active Substance: DIPYRONE
     Indication: ABDOMINAL PAIN
     Route: 065
     Dates: start: 20180221, end: 20180403
  37. RANITIDINE. [Concomitant]
     Active Substance: RANITIDINE
     Route: 065
     Dates: start: 20180412, end: 20180412
  38. NYSTATIN. [Concomitant]
     Active Substance: NYSTATIN
     Indication: STOMATITIS
     Route: 065
     Dates: start: 20180323, end: 20180821
  39. LACTULONA [Concomitant]
     Indication: CONSTIPATION
     Route: 065
     Dates: start: 20180404, end: 20180408
  40. LACTULONA [Concomitant]
     Route: 065
     Dates: start: 20180502, end: 20180502
  41. LOPERAMIDE [Concomitant]
     Active Substance: LOPERAMIDE
     Indication: DIARRHOEA
     Route: 065
     Dates: start: 20180321, end: 20180321
  42. FERROUS SULFATE. [Concomitant]
     Active Substance: FERROUS SULFATE
     Route: 065
     Dates: start: 20180427
  43. TRIAMCINOLONE [Concomitant]
     Active Substance: TRIAMCINOLONE
     Indication: STOMATITIS
     Dosage: DOSE 1 OTHER
     Route: 061
     Dates: start: 20180331, end: 20180408
  44. SODIUM CHLORIDE. [Concomitant]
     Active Substance: SODIUM CHLORIDE
     Indication: HYPONATRAEMIA
     Route: 065
     Dates: start: 20180331, end: 20180401
  45. LORATADINE. [Concomitant]
     Active Substance: LORATADINE
     Indication: PAPULE
     Route: 065
     Dates: start: 20180430, end: 20180502
  46. DEXAMETHASONE. [Concomitant]
     Active Substance: DEXAMETHASONE
     Route: 048
     Dates: start: 20180424, end: 20180502
  47. CAPTOPRIL. [Concomitant]
     Active Substance: CAPTOPRIL
     Indication: HYPERTENSION
     Route: 065
     Dates: start: 20180408, end: 20180408
  48. PROMETHAZINE [Concomitant]
     Active Substance: PROMETHAZINE\PROMETHAZINE HYDROCHLORIDE
     Indication: URTICARIA
     Route: 065
     Dates: start: 20180428, end: 20180428
  49. ALOE VERA CREAM [Concomitant]
     Indication: STOMATITIS
     Route: 065
     Dates: start: 20180331, end: 20180408
  50. BEVACIZUMAB. [Suspect]
     Active Substance: BEVACIZUMAB
     Indication: OVARIAN CANCER
     Dosage: DATE OF MOST RECENT DOSE OF BEVACIZUMAB PRIOR TO AE ONSET 20 MAR 2018?ON 12/APR/2018, SHE RECEIVED M
     Route: 042
     Dates: start: 20180320
  51. FLUOXETIN [Concomitant]
     Active Substance: FLUOXETINE HYDROCHLORIDE
     Indication: ANXIETY
     Route: 065
     Dates: start: 2014
  52. ONDANSETRON [Concomitant]
     Active Substance: ONDANSETRON
     Route: 065
     Dates: start: 20180412, end: 20180412
  53. ONDANSETRON [Concomitant]
     Active Substance: ONDANSETRON
     Route: 065
     Dates: start: 20180321, end: 20180321
  54. LUFTAL [Concomitant]
     Active Substance: DIMETHICONE
     Indication: CONSTIPATION
     Route: 065
     Dates: start: 20180404, end: 20180408
  55. CAPTOPRIL. [Concomitant]
     Active Substance: CAPTOPRIL
     Route: 065
     Dates: start: 20180501, end: 20180501
  56. AMLODIPINE [Concomitant]
     Active Substance: AMLODIPINE BESYLATE
     Indication: HYPERTENSION
     Route: 065
     Dates: start: 20180426, end: 20180426
  57. FOLIC ACID. [Concomitant]
     Active Substance: FOLIC ACID
     Route: 065
     Dates: start: 20180427
  58. RED CELL CONCENTRATE [Concomitant]
     Indication: ANAEMIA
     Route: 065
     Dates: start: 20180426, end: 20180426

REACTIONS (5)
  - Febrile neutropenia [Recovered/Resolved]
  - Urticaria [Recovered/Resolved]
  - Hypertension [Recovered/Resolved]
  - Thrombocytopenia [Recovered/Resolved]
  - Hypertension [Recovered/Resolved]

NARRATIVE: CASE EVENT DATE: 20180329
